FAERS Safety Report 10040676 (Version 1)
Quarter: 2014Q1

REPORT INFORMATION
  Report Type: Spontaneous
  Country: US (occurrence: US)
  Receive Date: 20140327
  Receipt Date: 20140327
  Transmission Date: 20141002
  Serious: Yes (Other)
  Sender: FDA-Public Use
  Company Number: US-ELI_LILLY_AND_COMPANY-US201403006811

PATIENT
  Sex: Male

DRUGS (3)
  1. HUMALOG LISPRO [Suspect]
     Indication: DIABETES MELLITUS
     Dosage: 30 U, BID
     Route: 065
  2. HUMALOG LISPRO [Suspect]
     Dosage: UNK UNK, PRN
     Route: 065
  3. LANTUS [Concomitant]
     Dosage: UNK, EACH EVENING

REACTIONS (1)
  - Myocardial infarction [Unknown]
